FAERS Safety Report 24750735 (Version 1)
Quarter: 2024Q4

REPORT INFORMATION
  Report Type: Spontaneous
  Country: CN (occurrence: CN)
  Receive Date: 20241218
  Receipt Date: 20241218
  Transmission Date: 20250114
  Serious: Yes (Other)
  Sender: PFIZER
  Company Number: CN-PFIZER INC-PV202400163704

PATIENT
  Age: 52 Year
  Sex: Male
  Weight: 43 kg

DRUGS (6)
  1. VORICONAZOLE [Suspect]
     Active Substance: VORICONAZOLE
     Indication: Implantation complication
     Dosage: 200 MG, 2X/DAY
     Dates: start: 20240715, end: 20240719
  2. SULFAMETHOXAZOLE [Concomitant]
     Active Substance: SULFAMETHOXAZOLE
     Indication: Implantation complication
     Dosage: 2 DF, 2X/DAY
     Dates: start: 20240715, end: 20240722
  3. OSELTAMIVIR [Concomitant]
     Active Substance: OSELTAMIVIR
     Indication: Implantation complication
     Dosage: 30 MG, 1X/DAY
     Dates: start: 20240712, end: 20240716
  4. OSELTAMIVIR [Concomitant]
     Active Substance: OSELTAMIVIR
     Dosage: 30 MG, 1X/DAY
     Dates: start: 20240712, end: 20240716
  5. GANCICLOVIR [Concomitant]
     Active Substance: GANCICLOVIR
     Indication: Implantation complication
     Dosage: 0.05 G, 1X/DAY
     Dates: start: 20240714, end: 20240730
  6. MEROPENEM [Concomitant]
     Active Substance: MEROPENEM
     Dosage: 0.5 G, 2X/DAY

REACTIONS (1)
  - Cardiac failure acute [Recovering/Resolving]

NARRATIVE: CASE EVENT DATE: 20240715
